FAERS Safety Report 4534145-2 (Version None)
Quarter: 2004Q4

REPORT INFORMATION
  Report Type: 
  Country: None (occurrence: None)
  Receive Date: 20041213
  Receipt Date: 20040506
  Transmission Date: 20050328
  Serious: Yes (Other)
  Sender: FDA-Public Use
  Company Number: US-JNJFOC-20040501045

PATIENT
  Age: 49 Year
  Sex: Female

DRUGS (1)
  1. PEPCID [Suspect]
     Indication: DYSPEPSIA
     Dosage: , 1 IN 1 TOTAL, ORAL
     Route: 048
     Dates: start: 20040504, end: 20040504

REACTIONS (1)
  - HYPERSENSITIVITY [None]
